FAERS Safety Report 7782593-X (Version None)
Quarter: 2011Q3

REPORT INFORMATION
  Report Type: 
  Country: None (occurrence: None)
  Receive Date: 20110923
  Receipt Date: 20110919
  Transmission Date: 20111222
  Serious: Yes (Hospitalization, Other)
  Sender: FDA-Public Use
  Company Number: 2009SP020314

PATIENT
  Age: 26 Year
  Sex: Female
  Weight: 77.1115 kg

DRUGS (1)
  1. NUVARING [Suspect]
     Indication: CONTRACEPTION
     Dosage: 1 DF;QM;VAG
     Route: 067
     Dates: start: 20060710, end: 20070206

REACTIONS (16)
  - HEADACHE [None]
  - DIARRHOEA [None]
  - DIZZINESS [None]
  - FAECES DISCOLOURED [None]
  - DYSPNOEA [None]
  - NAUSEA [None]
  - PULMONARY EMBOLISM [None]
  - MELAENA [None]
  - VAGINITIS BACTERIAL [None]
  - PNEUMOMEDIASTINUM [None]
  - INSOMNIA [None]
  - STRESS [None]
  - ASTHENIA [None]
  - ABDOMINAL PAIN [None]
  - LIGAMENT SPRAIN [None]
  - PAIN [None]
